FAERS Safety Report 6816440-7 (Version None)
Quarter: 2010Q3

REPORT INFORMATION
  Report Type: 
  Country: None (occurrence: None)
  Receive Date: 20100705
  Receipt Date: 20100629
  Transmission Date: 20110219
  Serious: Yes (Life-Threatening, Hospitalization, Other)
  Sender: FDA-Public Use
  Company Number: FR-BRISTOL-MYERS SQUIBB COMPANY-15173388

PATIENT
  Age: 32 Year
  Sex: Female

DRUGS (3)
  1. ABILIFY [Suspect]
     Indication: BIPOLAR I DISORDER
     Dosage: DOSE REDUCED BY 3 ON MID DEC2009
     Route: 048
     Dates: start: 20090601
  2. EFFEXOR [Suspect]
     Indication: BIPOLAR I DISORDER
     Dosage: DOSE REDUCED BY 2 ON MID DEC2009
     Route: 048
     Dates: start: 20060101
  3. TERALITHE [Suspect]
     Indication: BIPOLAR I DISORDER
     Route: 048
     Dates: start: 20070101

REACTIONS (2)
  - ISCHAEMIC STROKE [None]
  - SYSTEMIC LUPUS ERYTHEMATOSUS [None]
